FAERS Safety Report 8852283 (Version 3)
Quarter: 2014Q4

REPORT INFORMATION
  Report Type: Spontaneous
  Country: US (occurrence: US)
  Receive Date: 20121022
  Receipt Date: 20141222
  Transmission Date: 20150529
  Serious: No
  Sender: FDA-Public Use
  Company Number: US-BAYER-2012-108474

PATIENT
  Age: 49 Year
  Sex: Female

DRUGS (3)
  1. BETASERON [Suspect]
     Active Substance: INTERFERON BETA-1B
     Indication: MULTIPLE SCLEROSIS
     Dosage: 0.25 MG, QOD
     Route: 058
     Dates: start: 201210, end: 201404
  2. BETASERON [Suspect]
     Active Substance: INTERFERON BETA-1B
     Indication: MULTIPLE SCLEROSIS
     Dosage: 0.25 MG, QOD
     Route: 058
     Dates: start: 201209, end: 201404
  3. LEXAPRO [Concomitant]
     Active Substance: ESCITALOPRAM OXALATE
     Dosage: 2.5 MG, QD

REACTIONS (9)
  - Injection site erythema [Not Recovered/Not Resolved]
  - Injection site bruising [None]
  - Injection site pain [Not Recovered/Not Resolved]
  - Depression [Recovering/Resolving]
  - Decreased interest [Not Recovered/Not Resolved]
  - Injection site reaction [None]
  - Injection site mass [None]
  - Fatigue [None]
  - Dysgeusia [None]

NARRATIVE: CASE EVENT DATE: 201211
